FAERS Safety Report 17684062 (Version 2)
Quarter: 2020Q2

REPORT INFORMATION
  Report Type: Report from Study
  Country: CA (occurrence: CA)
  Receive Date: 20200420
  Receipt Date: 20200629
  Transmission Date: 20200714
  Serious: Yes (Other)
  Sender: FDA-Public Use
  Company Number: NVSC2020CA058895

PATIENT
  Age: 48 Year
  Sex: Female

DRUGS (6)
  1. METHOTREXATE. [Suspect]
     Active Substance: METHOTREXATE
     Indication: PSORIATIC ARTHROPATHY
     Dosage: UNK UNK, UNKNOWN
     Route: 065
  2. LEFLUNOMIDE. [Suspect]
     Active Substance: LEFLUNOMIDE
     Indication: PSORIATIC ARTHROPATHY
     Dosage: UNK UNK, UNKNOWN
     Route: 065
  3. SIMPONI [Suspect]
     Active Substance: GOLIMUMAB
     Indication: PSORIATIC ARTHROPATHY
     Dosage: UNK UNK, UNKNOWN
     Route: 065
  4. CORTISONE [Concomitant]
     Active Substance: CORTISONE
     Indication: PRODUCT USED FOR UNKNOWN INDICATION
     Dosage: UNK
     Route: 065
  5. PREDNISONE. [Concomitant]
     Active Substance: PREDNISONE
     Indication: PRODUCT USED FOR UNKNOWN INDICATION
     Dosage: UNK UNK, UNKNOWN
     Route: 065
     Dates: start: 201911, end: 2019
  6. HYDROXYCHLOROQUINE [Concomitant]
     Active Substance: HYDROXYCHLOROQUINE
     Indication: PRODUCT USED FOR UNKNOWN INDICATION
     Dosage: UNK UNK, UNKNOWN
     Route: 065
     Dates: start: 2016, end: 2016

REACTIONS (17)
  - Enthesophyte [Unknown]
  - Hyperaemia [Unknown]
  - Enthesopathy [Unknown]
  - Cellulitis [Unknown]
  - Arthritis bacterial [Unknown]
  - White blood cell count increased [Unknown]
  - Osteoarthritis [Unknown]
  - Joint swelling [Recovering/Resolving]
  - Exostosis [Unknown]
  - Osteosclerosis [Unknown]
  - Dyspnoea [Unknown]
  - Arthralgia [Recovering/Resolving]
  - Pulmonary hypertension [Unknown]
  - Sacroiliitis [Unknown]
  - Musculoskeletal stiffness [Unknown]
  - Haemoglobin decreased [Unknown]
  - Drug ineffective [Unknown]

NARRATIVE: CASE EVENT DATE: 20200117
